FAERS Safety Report 4579761-7 (Version None)
Quarter: 2005Q1

REPORT INFORMATION
  Report Type: 
  Country: None (occurrence: None)
  Receive Date: 20050210
  Receipt Date: 20040914
  Transmission Date: 20050727
  Serious: Yes (Other)
  Sender: FDA-Public Use
  Company Number: 6010576F

PATIENT
  Age: 43 Year
  Sex: Female

DRUGS (1)
  1. NIASPAN [Suspect]
     Dosage: 500 MG UNK; PO
     Route: 048

REACTIONS (3)
  - BLOOD CREATINE PHOSPHOKINASE INCREASED [None]
  - MYALGIA [None]
  - MYOPATHY [None]
